FAERS Safety Report 16813263 (Version 1)
Quarter: 2019Q3

REPORT INFORMATION
  Report Type: Spontaneous
  Country: US (occurrence: US)
  Receive Date: 20190916
  Receipt Date: 20190916
  Transmission Date: 20191005
  Serious: Yes (Hospitalization, Other)
  Sender: FDA-Public Use
  Company Number: US-ASTRAZENECA-2019SF29594

PATIENT
  Sex: Female

DRUGS (16)
  1. PANTOPRAZOLE [Concomitant]
     Active Substance: PANTOPRAZOLE
     Route: 048
  2. NAMENDA [Concomitant]
     Active Substance: MEMANTINE HYDROCHLORIDE
     Route: 048
  3. LEVOFLOXACIN. [Concomitant]
     Active Substance: LEVOFLOXACIN
     Route: 048
  4. MELOXICAN [Concomitant]
     Active Substance: MELOXICAM
     Route: 048
  5. LATUDA [Concomitant]
     Active Substance: LURASIDONE HYDROCHLORIDE
     Route: 048
  6. FARXIGA [Suspect]
     Active Substance: DAPAGLIFLOZIN PROPANEDIOL
     Route: 048
  7. NITROGLYCERIN. [Concomitant]
     Active Substance: NITROGLYCERIN
     Dosage: 0.3MG NOT APPLICABLE
     Route: 060
  8. CALOPIDOGREL [Concomitant]
     Route: 048
  9. BYDUREON [Suspect]
     Active Substance: EXENATIDE
     Indication: TYPE 2 DIABETES MELLITUS
     Route: 058
  10. ASPIRIN. [Concomitant]
     Active Substance: ASPIRIN
     Route: 048
  11. LACTULOSE. [Concomitant]
     Active Substance: LACTULOSE
     Indication: CONSTIPATION
     Dosage: 10
     Route: 058
  12. VESICARE [Concomitant]
     Active Substance: SOLIFENACIN SUCCINATE
     Route: 047
  13. METFORMIN [Concomitant]
     Active Substance: METFORMIN HYDROCHLORIDE
     Indication: TYPE 2 DIABETES MELLITUS
     Route: 048
  14. LEVEMIR [Concomitant]
     Active Substance: INSULIN DETEMIR
     Dosage: 80
  15. MIDODRINE [Concomitant]
     Active Substance: MIDODRINE
     Route: 048
  16. ATROVASTIN [Concomitant]
     Indication: BLOOD CHOLESTEROL
     Route: 048

REACTIONS (4)
  - Pancreatitis [Unknown]
  - Chest pain [Unknown]
  - Constipation [Unknown]
  - Drug hypersensitivity [Unknown]
